FAERS Safety Report 6216979-1 (Version None)
Quarter: 2009Q2

REPORT INFORMATION
  Report Type: 
  Country: None (occurrence: None)
  Receive Date: 20090604
  Receipt Date: 20090526
  Transmission Date: 20091009
  Serious: Yes (Hospitalization)
  Sender: FDA-Public Use
  Company Number: 1000005559

PATIENT
  Age: 45 Year
  Sex: Female
  Weight: 68.3 kg

DRUGS (10)
  1. MILNACIPRAN (OPEN-LABEL) (MILNACIPRAN HYDROCHLORIDE) [Suspect]
     Indication: FIBROMYALGIA
     Dosage: 50 MG (25 MG, 2 IN 1 D), ORAL
     Route: 048
     Dates: start: 20090318, end: 20090324
  2. PREGABALIN [Suspect]
     Indication: FIBROMYALGIA
     Dosage: 450 MG (225 MG, 2 IN 1 D), ORAL
     Route: 048
     Dates: start: 20090301, end: 20090324
  3. TYLENOL SINUS [Concomitant]
  4. SALONPAS (POULTICE OR PATCH) [Concomitant]
  5. TYLENOL (CAPLET) [Concomitant]
  6. IBUPROFEN [Concomitant]
  7. KLONOPIN [Concomitant]
  8. ETODOLAC [Concomitant]
  9. VITAMIN D [Concomitant]
  10. FAMOTIDINE [Concomitant]

REACTIONS (9)
  - ABDOMINAL DISTENSION [None]
  - CONSTIPATION [None]
  - GASTRITIS [None]
  - HAEMATOCRIT DECREASED [None]
  - HEPATIC STEATOSIS [None]
  - IRRITABLE BOWEL SYNDROME [None]
  - OEDEMA PERIPHERAL [None]
  - PRURITUS [None]
  - URINARY TRACT INFECTION [None]
